FAERS Safety Report 4893747-4 (Version None)
Quarter: 2006Q1

REPORT INFORMATION
  Report Type: 
  Country: None (occurrence: None)
  Receive Date: 20060127
  Receipt Date: 20050519
  Transmission Date: 20060701
  Serious: Yes (Hospitalization)
  Sender: FDA-Public Use
  Company Number: GBWYE681019MAY05

PATIENT
  Sex: Female
  Weight: 73 kg

DRUGS (14)
  1. ENBREL [Suspect]
     Indication: RHEUMATOID ARTHRITIS
     Route: 058
     Dates: start: 20040509, end: 20040715
  2. INSULIN ASPART [Concomitant]
     Dosage: UNKNOWN
     Route: 065
  3. DEXTROPROPOXYPHENE HYDROCHLORIDE/PARACETAMOL [Concomitant]
     Dosage: UNKNOWN
     Route: 065
  4. ATENOLOL [Concomitant]
     Dosage: UNKNOWN
     Route: 065
  5. QUININE SULFATE [Concomitant]
     Dosage: UNKNOWN
     Route: 065
  6. ATORVASTATIN CALCIUM [Concomitant]
     Dosage: UNKNOWN
     Route: 065
  7. ACETYLSALICYLIC ACID [Concomitant]
     Dosage: UNKNOWN
     Route: 065
  8. LANSOPRAZOLE [Concomitant]
     Dosage: UNKNOWN
     Route: 065
  9. FUROSEMIDE [Concomitant]
     Dosage: UNKNOWN
     Route: 065
  10. LACTULOSE [Concomitant]
     Dosage: UNKNOWN
     Route: 065
  11. RAMIPRIL [Concomitant]
     Dosage: UNKNOWN
     Route: 065
  12. ZOPICLONE [Concomitant]
     Route: 065
  13. CHLORPHENIRAMINE MALEATE [Concomitant]
     Dosage: UNKNOWN
     Route: 065
  14. TRAMADOL HCL [Concomitant]
     Dosage: UNKNOWN
     Route: 065

REACTIONS (2)
  - CHOLECYSTITIS [None]
  - HYPERGLYCAEMIA [None]
